FAERS Safety Report 5554862-5 (Version None)
Quarter: 2007Q4

REPORT INFORMATION
  Report Type: 
  Country: None (occurrence: None)
  Receive Date: 20071213
  Receipt Date: 20071130
  Transmission Date: 20080405
  Serious: Yes (Other)
  Sender: FDA-Public Use
  Company Number: JP-AMGEN-US253372

PATIENT
  Sex: Male

DRUGS (8)
  1. ENBREL [Suspect]
     Indication: RHEUMATOID ARTHRITIS
     Route: 065
     Dates: start: 20071012, end: 20071023
  2. GASTER [Concomitant]
     Indication: GASTRITIS
     Route: 048
     Dates: start: 20050805, end: 20071109
  3. STICK ZENOL [Concomitant]
     Indication: RHEUMATOID ARTHRITIS
     Dosage: UNSPECIFIED
     Route: 065
     Dates: start: 20050114, end: 20071109
  4. NOVORAPID [Concomitant]
     Indication: DIABETES MELLITUS
     Dosage: UNSPECIFIED
     Route: 058
     Dates: start: 20070411, end: 20071109
  5. VOLTAREN [Concomitant]
     Indication: RHEUMATOID ARTHRITIS
     Dosage: 25 MG, FREQUENCY UNSPECIFIED
     Route: 054
     Dates: start: 20050114, end: 20071109
  6. KETOPROFEN [Concomitant]
     Indication: RHEUMATOID ARTHRITIS
     Dosage: UNSPECIFIED
     Route: 065
     Dates: start: 20050114, end: 20071109
  7. PREDONINE [Concomitant]
     Indication: RHEUMATOID ARTHRITIS
     Dosage: UNPSECIFIED
     Route: 048
     Dates: start: 20050114, end: 20071109
  8. BLOPRESS [Concomitant]
     Indication: HYPERTENSION
     Route: 048
     Dates: start: 20070928, end: 20071109

REACTIONS (1)
  - INFECTION [None]
